FAERS Safety Report 10890503 (Version 1)
Quarter: 2015Q1

REPORT INFORMATION
  Report Type: Spontaneous
  Country: GB (occurrence: GB)
  Receive Date: 20150305
  Receipt Date: 20150305
  Transmission Date: 20150721
  Serious: Yes (Death, Other)
  Sender: FDA-Public Use
  Company Number: GB-CIPLA LTD.-2015GB01600

PATIENT

DRUGS (3)
  1. CITALOPRAM [Suspect]
     Active Substance: CITALOPRAM HYDROBROMIDE
     Indication: PRODUCT USED FOR UNKNOWN INDICATION
  2. CLOZARIL [Suspect]
     Active Substance: CLOZAPINE
     Indication: SCHIZOPHRENIA
     Dosage: UNK
     Dates: start: 20040202
  3. VALPROATE SEMISODIUM [Concomitant]
     Active Substance: DIVALPROEX SODIUM
     Indication: SCHIZOPHRENIA
     Dosage: 1500 MG, QD
     Route: 048

REACTIONS (8)
  - Cardiopulmonary failure [Fatal]
  - Decreased appetite [Unknown]
  - Cor pulmonale [Fatal]
  - Obesity [Fatal]
  - Neutrophil count decreased [Unknown]
  - Delusion [Unknown]
  - Sleep disorder [Unknown]
  - Alcohol poisoning [Fatal]
